FAERS Safety Report 20345904 (Version 7)
Quarter: 2024Q4

REPORT INFORMATION
  Report Type: Report from Study
  Country: US (occurrence: US)
  Receive Date: 20220118
  Receipt Date: 20241217
  Transmission Date: 20250115
  Serious: Yes (Hospitalization, Other)
  Sender: TAKEDA
  Company Number: US-TAKEDA-2022TUS002723

PATIENT
  Age: 55 Year
  Sex: Female
  Weight: 93 kg

DRUGS (4)
  1. PONATINIB [Suspect]
     Active Substance: PONATINIB
     Indication: Acute lymphocytic leukaemia (in remission)
     Dosage: 15 MILLIGRAM, QD
     Dates: start: 202108
  2. PONATINIB [Suspect]
     Active Substance: PONATINIB
     Indication: Neoplasm malignant
  3. PONATINIB [Suspect]
     Active Substance: PONATINIB
     Indication: Acute lymphocytic leukaemia
  4. ASPIRIN [Concomitant]
     Active Substance: ASPIRIN
     Dosage: UNK

REACTIONS (11)
  - Localised infection [Unknown]
  - Kidney infection [Unknown]
  - Bacterial infection [Unknown]
  - Acute lymphocytic leukaemia [Unknown]
  - Fall [Unknown]
  - Ankle fracture [Unknown]
  - Impaired quality of life [Unknown]
  - Skin disorder [Unknown]
  - Product use issue [Recovered/Resolved]
  - Product dose omission issue [Unknown]
  - Fatigue [Unknown]

NARRATIVE: CASE EVENT DATE: 20220815
